FAERS Safety Report 6319235-6 (Version None)
Quarter: 2009Q3

REPORT INFORMATION
  Report Type: 
  Country: None (occurrence: None)
  Receive Date: 20090821
  Receipt Date: 20080814
  Transmission Date: 20100115
  Serious: No
  Sender: FDA-Public Use
  Company Number: US-ABBOTT-08P-163-0470917-00

PATIENT
  Sex: Female

DRUGS (10)
  1. NIASPAN [Suspect]
     Indication: HIGH DENSITY LIPOPROTEIN DECREASED
     Route: 048
     Dates: start: 20080721, end: 20080728
  2. LOVASTATIN [Suspect]
     Indication: BLOOD CHOLESTEROL
     Dosage: AT BEDTIME
     Route: 048
  3. LOVASTATIN [Suspect]
  4. METFORMIN [Concomitant]
     Indication: DIABETES MELLITUS
     Route: 048
     Dates: start: 20040101
  5. RISEDRONATE SODIUM [Concomitant]
     Indication: BONE DISORDER
     Route: 048
     Dates: start: 20070101
  6. LEVOTHYROXINE SODIUM [Concomitant]
     Indication: GOITRE
     Route: 048
  7. TRAVACANO [Concomitant]
     Indication: GLAUCOMA
     Dosage: 1 DROP EACH EYE/DAILY
     Route: 047
  8. TRAVACANO [Concomitant]
  9. LEVOBUNOLOL HYDROCHLORIDE [Concomitant]
     Indication: GLAUCOMA
     Dosage: 1 DROP IN EACH EYE/TWICE DAILY
     Route: 047
  10. ASPIRIN [Concomitant]
     Indication: DRUG USE FOR UNKNOWN INDICATION
     Dosage: AT NIGHT/FOR NIASPAN
     Route: 048

REACTIONS (2)
  - BLOOD GLUCOSE INCREASED [None]
  - MUSCLE SPASMS [None]
